FAERS Safety Report 18019458 (Version 2)
Quarter: 2020Q3

REPORT INFORMATION
  Report Type: Spontaneous
  Country: CA (occurrence: CA)
  Receive Date: 20200714
  Receipt Date: 20200730
  Transmission Date: 20201103
  Serious: Yes (Hospitalization)
  Sender: FDA-Public Use
  Company Number: CA-ACCORD-189780

PATIENT
  Age: 75 Year
  Sex: Female

DRUGS (18)
  1. SULFASALAZINE. [Suspect]
     Active Substance: SULFASALAZINE
     Indication: RHEUMATOID ARTHRITIS
     Dosage: 1 EVERY 1 DAYS
     Route: 065
  2. TYLENOL [Concomitant]
     Active Substance: ACETAMINOPHEN
  3. METHOTREXATE. [Suspect]
     Active Substance: METHOTREXATE
     Indication: RHEUMATOID ARTHRITIS
     Dosage: 1 EVERY 1 WEEKS
     Route: 058
  4. HYDROXYCHLOROQUINE [Suspect]
     Active Substance: HYDROXYCHLOROQUINE
     Indication: PRODUCT USED FOR UNKNOWN INDICATION
     Dosage: 1 EVERY 1 DAYS
     Route: 065
  5. FENTANYL. [Suspect]
     Active Substance: FENTANYL
     Indication: PRODUCT USED FOR UNKNOWN INDICATION
     Route: 065
  6. ACTEMRA [Suspect]
     Active Substance: TOCILIZUMAB
     Indication: RHEUMATOID ARTHRITIS
     Dosage: 1 EVERY 1 MONTHS
     Route: 042
  7. PREDNISONE. [Concomitant]
     Active Substance: PREDNISONE
  8. SULFASALAZINE. [Suspect]
     Active Substance: SULFASALAZINE
     Indication: PRODUCT USED FOR UNKNOWN INDICATION
     Route: 048
  9. GABAPENTIN. [Suspect]
     Active Substance: GABAPENTIN
     Indication: PRODUCT USED FOR UNKNOWN INDICATION
     Dosage: 1 EVERY 2 WEEKS
     Route: 048
  10. ORENCIA [Suspect]
     Active Substance: ABATACEPT
     Indication: RHEUMATOID ARTHRITIS
     Dosage: 1 EVERY 1 MONTHS
     Route: 042
  11. ZOLEDRONIC ACID [Concomitant]
     Active Substance: ZOLEDRONIC ACID
  12. NASONEX [Concomitant]
     Active Substance: MOMETASONE FUROATE
     Dosage: SPRAY, METERED DOSE
  13. MYOCHRYSINE [Suspect]
     Active Substance: GOLD SODIUM THIOMALATE
     Indication: PRODUCT USED FOR UNKNOWN INDICATION
     Dosage: INTRAMUSCULAR SOLUTION, 1 EVERY 3 WEEKS
     Route: 030
  14. TRAZODONE [Concomitant]
     Active Substance: TRAZODONE HYDROCHLORIDE
  15. CELEBREX [Suspect]
     Active Substance: CELECOXIB
     Indication: ARTHRITIS
     Route: 048
  16. ENBREL [Suspect]
     Active Substance: ETANERCEPT
     Indication: RHEUMATOID ARTHRITIS
     Dosage: 1 EVERY 1 WEEKS
     Route: 065
  17. ORENCIA [Suspect]
     Active Substance: ABATACEPT
     Indication: PRODUCT USED FOR UNKNOWN INDICATION
     Dosage: 1 EVERY 1 WEEKS
     Route: 058
  18. OXYCONTIN [Suspect]
     Active Substance: OXYCODONE HYDROCHLORIDE
     Indication: PRODUCT USED FOR UNKNOWN INDICATION
     Dosage: 1 EVERY 1 MONTHS
     Route: 065

REACTIONS (39)
  - Dry eye [Unknown]
  - Fatigue [Unknown]
  - Gastrointestinal disorder [Unknown]
  - Infection [Unknown]
  - Presbyacusis [Unknown]
  - Osteopenia [Unknown]
  - Rheumatoid arthritis [Unknown]
  - Therapeutic product effect decreased [Unknown]
  - Blood potassium increased [Unknown]
  - Drug ineffective [Unknown]
  - Epigastric discomfort [Unknown]
  - Arthropathy [Unknown]
  - Crohn^s disease [Unknown]
  - Deformity [Unknown]
  - Exostosis [Unknown]
  - Osteosclerosis [Unknown]
  - Pain in extremity [Unknown]
  - Nausea [Unknown]
  - Blood magnesium increased [Unknown]
  - Pleural thickening [Unknown]
  - Treatment failure [Unknown]
  - Skin lesion [Unknown]
  - Blood creatinine increased [Unknown]
  - Deafness neurosensory [Unknown]
  - Diarrhoea [Unknown]
  - Drug intolerance [Unknown]
  - Renal impairment [Unknown]
  - Pleural fibrosis [Unknown]
  - Sleep disorder [Unknown]
  - Cyst [Unknown]
  - Hypersensitivity [Unknown]
  - Mobility decreased [Unknown]
  - Musculoskeletal stiffness [Unknown]
  - Pain [Unknown]
  - Arthralgia [Unknown]
  - Bone cyst [Unknown]
  - Osteoarthritis [Unknown]
  - Joint swelling [Unknown]
  - Myocardial infarction [Unknown]
